FAERS Safety Report 8474075-7 (Version None)
Quarter: 2012Q2

REPORT INFORMATION
  Report Type: 
  Country: None (occurrence: None)
  Receive Date: 20120628
  Receipt Date: 20110520
  Transmission Date: 20120825
  Serious: Yes (Other)
  Sender: FDA-Public Use
  Company Number: US-MYLANLABS-2011S1007232

PATIENT
  Age: 56 Year
  Sex: Male

DRUGS (3)
  1. SEROQUEL [Concomitant]
  2. INVEGA [Concomitant]
  3. CLOZAPINE [Suspect]
     Route: 048
     Dates: start: 20090101, end: 20110330

REACTIONS (2)
  - GRANULOCYTOPENIA [None]
  - LEUKOPENIA [None]
